FAERS Safety Report 5858819-6 (Version None)
Quarter: 2008Q3

REPORT INFORMATION
  Report Type: 
  Country: None (occurrence: None)
  Receive Date: 20080825
  Receipt Date: 20080814
  Transmission Date: 20090109
  Serious: Yes (Other)
  Sender: FDA-Public Use
  Company Number: 2008AL009633

PATIENT
  Age: 50 Year
  Sex: Female

DRUGS (15)
  1. CYCLOBENZAPRINE HCL [Suspect]
     Dosage: 10 MG; PO
     Route: 048
  2. ACETAMINOPHEN AND HYDROCODONE BITARTRATE [Concomitant]
  3. SEROQUEL [Concomitant]
  4. DEPAKOTE [Concomitant]
  5. ORTHO TRI-CYCLEN [Concomitant]
  6. SYNTHROID [Concomitant]
  7. ASPIRIN [Concomitant]
  8. COLACE [Concomitant]
  9. VOTA,OM B12 [Concomitant]
  10. TORADOL [Concomitant]
  11. TUMS [Concomitant]
  12. CENTRUM SILVER [Concomitant]
  13. VALTREX [Concomitant]
  14. KLONOPIN [Concomitant]
  15. EPIPEN [Concomitant]

REACTIONS (4)
  - ANAPHYLACTIC REACTION [None]
  - CHEST DISCOMFORT [None]
  - RESPIRATORY RATE DECREASED [None]
  - TREMOR [None]
